FAERS Safety Report 5148523-4 (Version None)
Quarter: 2006Q4

REPORT INFORMATION
  Report Type: 
  Country: None (occurrence: None)
  Receive Date: 20061107
  Receipt Date: 20061027
  Transmission Date: 20070319
  Serious: Yes (Death)
  Sender: FDA-Public Use
  Company Number: A-CH2006-13240

PATIENT
  Age: 80 Year

DRUGS (1)
  1. TRACLEER [Suspect]
     Indication: PULMONARY HYPERTENSION
     Dosage: 62.5 MG, BID, ORAL
     Route: 048
     Dates: start: 20040428, end: 20060615

REACTIONS (3)
  - ANAEMIA [None]
  - HAEMODILUTION [None]
  - HAEMORRHAGE INTRACRANIAL [None]
